FAERS Safety Report 8770522 (Version 1)
Quarter: 2012Q4

REPORT INFORMATION
  Report Type: 
  Country: GB (occurrence: GB)
  Receive Date: 20120906
  Receipt Date: 20120906
  Transmission Date: 20130627
  Serious: Yes (Disabling)
  Sender: FDA-Public Use
  Company Number: GB-PFIZER INC-2012213805

PATIENT
  Age: 65 Year
  Sex: Male
  Weight: 76.7 kg

DRUGS (25)
  1. AZITHROMYCIN [Suspect]
  2. BUDESONIDE [Concomitant]
     Dates: start: 20120430, end: 20120730
  3. SIMVASTATIN [Concomitant]
     Dates: start: 20120430, end: 20120730
  4. TIOTROPIUM [Concomitant]
     Dates: start: 20120430, end: 20120801
  5. VENTOLIN [Concomitant]
     Dates: start: 20120430, end: 20120730
  6. CO-CODAMOL [Concomitant]
     Dates: start: 20120509, end: 20120521
  7. CO-CODAMOL [Concomitant]
     Dates: start: 20120622, end: 20120704
  8. FUROSEMIDE [Concomitant]
     Dates: start: 20120514, end: 20120821
  9. DIPROBASE, UNSPECIFIED [Concomitant]
     Dates: start: 20120521, end: 20120725
  10. AMOXICILLIN [Concomitant]
     Dates: start: 20120528, end: 20120602
  11. AMOXICILLIN [Concomitant]
     Dates: start: 20120612, end: 20120617
  12. AMOXICILLIN [Concomitant]
     Dates: start: 20120626, end: 20120701
  13. AMOXICILLIN [Concomitant]
     Dates: start: 20120720, end: 20120725
  14. PREDNISOLONE [Concomitant]
     Dates: start: 20120528, end: 20120602
  15. PREDNISOLONE [Concomitant]
     Dates: start: 20120611, end: 20120616
  16. PREDNISOLONE [Concomitant]
     Dates: start: 20120626, end: 20120701
  17. PREDNISOLONE [Concomitant]
     Dates: start: 20120720, end: 20120725
  18. SALBUTAMOL [Concomitant]
     Dates: start: 20120530, end: 20120604
  19. SALBUTAMOL [Concomitant]
     Dates: start: 20120703, end: 20120708
  20. PIROXICAM [Concomitant]
     Dates: start: 20120606, end: 20120607
  21. PIROXICAM [Concomitant]
     Dates: start: 20120622, end: 20120623
  22. FLUCLOXACILLIN [Concomitant]
     Dates: start: 20120622, end: 20120627
  23. LANSOPRAZOLE [Concomitant]
     Dates: start: 20120622, end: 20120720
  24. LORAZEPAM [Concomitant]
     Dates: start: 20120627, end: 20120725
  25. CO-FLUAMPICIL [Concomitant]
     Dates: start: 20120704, end: 20120709

REACTIONS (1)
  - Dyspnoea [Recovered/Resolved]
